FAERS Safety Report 5964425-5 (Version None)
Quarter: 2008Q4

REPORT INFORMATION
  Report Type: 
  Country: None (occurrence: None)
  Receive Date: 20081124
  Receipt Date: 20081117
  Transmission Date: 20090506
  Serious: Yes (Other)
  Sender: FDA-Public Use
  Company Number: US-PFIZER INC-2008097671

PATIENT
  Sex: Male

DRUGS (3)
  1. LIPITOR [Suspect]
     Indication: BLOOD CHOLESTEROL INCREASED
     Dates: start: 20081022, end: 20081113
  2. MULTI-VITAMINS [Concomitant]
  3. ALL OTHER THERAPEUTIC PRODUCTS [Concomitant]
     Indication: HYPERTENSION

REACTIONS (3)
  - ACTIVITIES OF DAILY LIVING IMPAIRED [None]
  - APATHY [None]
  - MUSCULAR WEAKNESS [None]
